FAERS Safety Report 17358888 (Version 1)
Quarter: 2020Q1

REPORT INFORMATION
  Report Type: Spontaneous
  Country: FR (occurrence: FR)
  Receive Date: 20200202
  Receipt Date: 20200202
  Transmission Date: 20200409
  Serious: Yes (Other)
  Sender: FDA-Public Use
  Company Number: NVSC2020FR020971

PATIENT
  Age: 19 Year
  Sex: Male
  Weight: 53 kg

DRUGS (3)
  1. AMANTADINE. [Suspect]
     Active Substance: AMANTADINE HYDROCHLORIDE
     Indication: VIRAL INFECTION
     Dosage: UNK
     Route: 048
     Dates: start: 20190908, end: 20190911
  2. PARACETAMOL [Suspect]
     Active Substance: ACETAMINOPHEN
     Indication: VIRAL INFECTION
     Dosage: UNK
     Route: 048
     Dates: start: 20190908, end: 20190911
  3. CHLORPHENIRAMINE. [Suspect]
     Active Substance: CHLORPHENIRAMINE
     Indication: VIRAL INFECTION
     Dosage: UNK
     Route: 048
     Dates: start: 20190908, end: 20190911

REACTIONS (1)
  - Fixed eruption [Recovering/Resolving]

NARRATIVE: CASE EVENT DATE: 20190918
